FAERS Safety Report 7339925-6 (Version None)
Quarter: 2011Q1

REPORT INFORMATION
  Report Type: 
  Country: None (occurrence: None)
  Receive Date: 20110309
  Receipt Date: 20110223
  Transmission Date: 20110831
  Serious: Yes (Other)
  Sender: FDA-Public Use
  Company Number: KR-RANBAXY-2011RR-42563

PATIENT
  Age: 39 Year
  Sex: Male

DRUGS (2)
  1. MIDAZOLAM [Suspect]
     Dosage: 2 MG, UNK
     Route: 042
  2. CEFTIZOXIME [Concomitant]

REACTIONS (2)
  - DYSPNOEA [None]
  - HYPERSENSITIVITY [None]
